FAERS Safety Report 5427076-7 (Version None)
Quarter: 2007Q3

REPORT INFORMATION
  Report Type: 
  Country: None (occurrence: None)
  Receive Date: 20070824
  Receipt Date: 20070824
  Transmission Date: 20080115
  Serious: Yes (Life-Threatening, Hospitalization)
  Sender: FDA-Public Use
  Company Number: None

PATIENT
  Sex: Female
  Weight: 60 kg

DRUGS (10)
  1. GANCICLOVIR [Suspect]
     Indication: CYTOMEGALOVIRUS INFECTION
     Dosage: 300MG IV BID
     Route: 042
     Dates: start: 20061208, end: 20070101
  2. TACROLIMUS [Concomitant]
  3. PREDNISONE [Concomitant]
  4. LISINOPRIL [Concomitant]
  5. MINOCYCLINE HCL [Concomitant]
  6. LEVOTHYROXINE SODIUM [Concomitant]
  7. CALCIUM [Concomitant]
  8. MULTI-VITAMIN [Concomitant]
  9. PRANDIN [Concomitant]
  10. ZETIA [Concomitant]

REACTIONS (1)
  - THROMBOCYTOPENIA [None]
